FAERS Safety Report 10365045 (Version 1)
Quarter: 2014Q3

REPORT INFORMATION
  Report Type: Spontaneous
  Country: US (occurrence: None)
  Receive Date: 20140804
  Receipt Date: 20140804
  Transmission Date: 20150326
  Serious: Yes (Disabling)
  Sender: FDA-Public Use
  Company Number: None

PATIENT
  Age: 37 Year
  Sex: Female
  Weight: 40.82 kg

DRUGS (1)
  1. CLONAZEPAM. [Suspect]
     Active Substance: CLONAZEPAM
     Indication: ANXIETY
     Dosage: 21 MG PILLS DAILY TWICE DAILY TAKEN BY MOUTH
     Route: 048

REACTIONS (3)
  - Drug tolerance [None]
  - Drug withdrawal syndrome [None]
  - Anxiety [None]
